FAERS Safety Report 10925503 (Version 1)
Quarter: 2015Q1

REPORT INFORMATION
  Report Type: Spontaneous
  Country: ES (occurrence: ES)
  Receive Date: 20150318
  Receipt Date: 20150318
  Transmission Date: 20150721
  Serious: Yes (Hospitalization)
  Sender: FDA-Public Use
  Company Number: ES-PFIZER INC-2015089873

PATIENT
  Age: 59 Year
  Sex: Female

DRUGS (10)
  1. ITRACONAZOLE. [Concomitant]
     Active Substance: ITRACONAZOLE
     Indication: PROPHYLAXIS
     Dosage: 200 MG, 2X/DAY
     Route: 042
     Dates: start: 20140301
  2. VORICONAZOLE. [Suspect]
     Active Substance: VORICONAZOLE
     Indication: BRONCHOPULMONARY ASPERGILLOSIS
     Dosage: 300 MG, 2X/DAY
     Route: 042
     Dates: start: 20140318, end: 20140321
  3. CEFEPIME [Suspect]
     Active Substance: CEFEPIME\CEFEPIME HYDROCHLORIDE
     Indication: PYREXIA
     Dosage: 2 G, 3X/DAY
     Route: 042
     Dates: start: 20140315, end: 20140321
  4. TAZOCEL [Suspect]
     Active Substance: PIPERACILLIN SODIUM\TAZOBACTAM SODIUM
     Indication: FEBRILE NEUTROPENIA
     Dosage: 4 G/0.5 G
     Route: 042
     Dates: start: 20140301, end: 20140314
  5. OMEPRAZOLE. [Concomitant]
     Active Substance: OMEPRAZOLE
     Indication: PROPHYLAXIS AGAINST GASTROINTESTINAL ULCER
     Dosage: 20 MG, 1X/DAY
     Route: 048
     Dates: start: 20140228
  6. LORAZEPAM. [Concomitant]
     Active Substance: LORAZEPAM
     Indication: INSOMNIA
     Dosage: 1 MG, 1X/DAY
     Route: 048
     Dates: start: 20140228
  7. VANCOMYCIN HCL [Suspect]
     Active Substance: VANCOMYCIN HYDROCHLORIDE
     Indication: FEBRILE NEUTROPENIA
     Dosage: 1 G, 2X/DAY
     Route: 042
     Dates: start: 20140305, end: 20140311
  8. HYDROCORTISONE. [Concomitant]
     Active Substance: HYDROCORTISONE
     Indication: BONE MARROW FAILURE
     Dosage: 100 MG, DAILY
     Route: 042
     Dates: start: 20140301
  9. ACICLOVIR [Concomitant]
     Active Substance: ACYCLOVIR
     Indication: PROPHYLAXIS
     Dosage: 800 MG, 2X/DAY
     Route: 042
     Dates: start: 20140301
  10. PARACETAMOL [Concomitant]
     Active Substance: ACETAMINOPHEN
     Indication: PAIN
     Dosage: 1 G, 1X/DAY
     Route: 042
     Dates: start: 20140228

REACTIONS (3)
  - Hallucination, visual [Recovering/Resolving]
  - Drug reaction with eosinophilia and systemic symptoms [Not Recovered/Not Resolved]
  - Hepatitis cholestatic [Unknown]

NARRATIVE: CASE EVENT DATE: 20140310
